FAERS Safety Report 17223364 (Version 1)
Quarter: 2020Q1

REPORT INFORMATION
  Report Type: Other
  Country: ES (occurrence: ES)
  Receive Date: 20200102
  Receipt Date: 20200102
  Transmission Date: 20200409
  Serious: Yes (Hospitalization, Congenital Anomaly)
  Sender: FDA-Public Use
  Company Number: ES-HEALTHCARE PHARMACEUTICALS LTD.-2078411

PATIENT
  Age: 15 Year
  Sex: Female

DRUGS (1)
  1. DOXORUBICIN HYDROCHLORIDE. [Suspect]
     Active Substance: DOXORUBICIN HYDROCHLORIDE
     Indication: DIFFUSE LARGE B-CELL LYMPHOMA
     Route: 065
     Dates: start: 201607, end: 201701

REACTIONS (13)
  - Left ventricular dysfunction [Recovered/Resolved]
  - Ventricular asystole [Recovering/Resolving]
  - Febrile neutropenia [Recovering/Resolving]
  - Hypotension [Recovering/Resolving]
  - Bradycardia [Recovering/Resolving]
  - Tricuspid valve incompetence [Recovering/Resolving]
  - Cardiotoxicity [Recovering/Resolving]
  - Right ventricular failure [Recovered/Resolved]
  - Cardiac arrest [Recovering/Resolving]
  - Hepatomegaly [Recovering/Resolving]
  - Oedema [Recovering/Resolving]
  - Weight increased [Unknown]
  - Tachycardia [Recovering/Resolving]

NARRATIVE: CASE EVENT DATE: 20160830
